FAERS Safety Report 11071540 (Version 1)
Quarter: 2015Q2

REPORT INFORMATION
  Report Type: Spontaneous
  Country: US (occurrence: None)
  Receive Date: 20150427
  Receipt Date: 20150427
  Transmission Date: 20150821
  Serious: Yes (Life-Threatening)
  Sender: FDA-Public Use
  Company Number: None

PATIENT
  Age: 59 Year
  Sex: Female
  Weight: 66.23 kg

DRUGS (22)
  1. DULOXETINE [Suspect]
     Active Substance: DULOXETINE
     Indication: BIPOLAR DISORDER
     Route: 048
     Dates: start: 20140401, end: 20141031
  2. CYMBALTA (BRAND) [Concomitant]
  3. HYDROCODONE [Concomitant]
     Active Substance: HYDROCODONE
  4. RESTASIS [Concomitant]
     Active Substance: CYCLOSPORINE
  5. ALBUTEROL. [Concomitant]
     Active Substance: ALBUTEROL
     Indication: BIPOLAR DISORDER
  6. FLUTICASONE [Concomitant]
     Active Substance: FLUTICASONE\FLUTICASONE PROPIONATE
  7. D3 [Concomitant]
     Active Substance: 25-HYDROXYCHOLECALCIFEROL, 5-TRANS-
  8. OMEPRAZOLE. [Concomitant]
     Active Substance: OMEPRAZOLE
  9. CALCIUM [Concomitant]
     Active Substance: CALCIUM
  10. DULERA [Concomitant]
     Active Substance: FORMOTEROL FUMARATE DIHYDRATE\MOMETASONE FUROATE
  11. FOLIC ACID. [Concomitant]
     Active Substance: FOLIC ACID
  12. TYLENOL [Concomitant]
     Active Substance: ACETAMINOPHEN
  13. ALPRAZOLAM. [Concomitant]
     Active Substance: ALPRAZOLAM
  14. ALBUTEROL. [Concomitant]
     Active Substance: ALBUTEROL
     Indication: ANXIETY
  15. ALBUTEROL. [Concomitant]
     Active Substance: ALBUTEROL
     Indication: PAIN
  16. METHOCARBAMOL. [Concomitant]
     Active Substance: METHOCARBAMOL
  17. VOLTAGE GEL [Concomitant]
  18. HYDROXYCHLOROQUINE [Concomitant]
     Active Substance: HYDROXYCHLOROQUINE
  19. SINGULAIR [Concomitant]
     Active Substance: MONTELUKAST SODIUM
  20. ESTRACE [Concomitant]
     Active Substance: ESTRADIOL
  21. LAMOTRIGINE. [Concomitant]
     Active Substance: LAMOTRIGINE
  22. METROGEL [Concomitant]
     Active Substance: METRONIDAZOLE

REACTIONS (8)
  - Condition aggravated [None]
  - Irritability [None]
  - Suicidal ideation [None]
  - Bipolar disorder [None]
  - Product substitution issue [None]
  - Pain [None]
  - Anger [None]
  - Drug ineffective [None]

NARRATIVE: CASE EVENT DATE: 20140901
